FAERS Safety Report 11299880 (Version 1)
Quarter: 2015Q3

REPORT INFORMATION
  Report Type: Spontaneous
  Country: US (occurrence: US)
  Receive Date: 20150722
  Receipt Date: 20150722
  Transmission Date: 20151125
  Serious: Yes (Death)
  Sender: FDA-Public Use
  Company Number: US-ELI_LILLY_AND_COMPANY-US201304002336

PATIENT
  Age: 66 Year
  Sex: Male

DRUGS (3)
  1. EFFIENT [Suspect]
     Active Substance: PRASUGREL HYDROCHLORIDE
     Indication: PERCUTANEOUS CORONARY INTERVENTION
     Dosage: 30 MG, LOADING DOSE
     Route: 048
     Dates: start: 20130307, end: 20130307
  2. ASPIRIN. [Concomitant]
     Active Substance: ASPIRIN
  3. ANGIOMAX [Concomitant]
     Active Substance: BIVALIRUDIN

REACTIONS (2)
  - Cerebral haemorrhage [Fatal]
  - Off label use [Unknown]

NARRATIVE: CASE EVENT DATE: 20130307
